FAERS Safety Report 6287444-0 (Version None)
Quarter: 2009Q3

REPORT INFORMATION
  Report Type: 
  Country: None (occurrence: None)
  Receive Date: 20090728
  Receipt Date: 20090722
  Transmission Date: 20100115
  Serious: Yes (Other)
  Sender: FDA-Public Use
  Company Number: DE-AMGEN-QUU352995

PATIENT
  Sex: Female
  Weight: 60 kg

DRUGS (9)
  1. ARANESP [Suspect]
     Indication: RENAL FAILURE CHRONIC
     Route: 058
     Dates: start: 20080914, end: 20090601
  2. METOPROLOL SUCCINATE [Concomitant]
     Dates: start: 20080303
  3. RAMIPRIL [Concomitant]
     Dates: start: 20080303
  4. TORSEMIDE [Concomitant]
     Dates: start: 20080303
  5. OMEPRAZOLE [Concomitant]
     Dates: start: 20080303
  6. CALCIUM ACETATE [Concomitant]
     Dates: start: 20080303
  7. VITAMIN D3 [Concomitant]
     Dates: start: 20080303
  8. ALENDRONIC ACID [Concomitant]
     Dates: start: 20080303
  9. ARIXTRA [Concomitant]
     Dates: start: 20080303

REACTIONS (4)
  - CEREBRAL ISCHAEMIA [None]
  - GRAND MAL CONVULSION [None]
  - SYNCOPE [None]
  - VERTIGO [None]
